FAERS Safety Report 12745101 (Version 2)
Quarter: 2016Q4

REPORT INFORMATION
  Report Type: Spontaneous
  Country: IT (occurrence: IT)
  Receive Date: 20160915
  Receipt Date: 20161018
  Transmission Date: 20170207
  Serious: Yes (Death)
  Sender: FDA-Public Use
  Company Number: IT-ROCHE-1830264

PATIENT
  Age: 75 Year
  Sex: Male

DRUGS (2)
  1. ROCEFIN [Suspect]
     Active Substance: CEFTRIAXONE SODIUM
     Indication: BRONCHIAL DISORDER
     Dosage: 1G/20 ML SALINE SOLUTION, POWDER AND SOLVENT FOR SOLUTION FOR INJECTION, 1G/10 ML -1 VIAL OF POWDER+
     Route: 042
     Dates: start: 2008
  2. ROCEFIN [Suspect]
     Active Substance: CEFTRIAXONE SODIUM
     Dosage: PERIOD OF ADMINISTRATION : 1 DAY
     Route: 042
     Dates: start: 201608

REACTIONS (2)
  - Anaphylactic shock [Fatal]
  - Off label use [Fatal]

NARRATIVE: CASE EVENT DATE: 201608
